FAERS Safety Report 6334764-7 (Version None)
Quarter: 2009Q3

REPORT INFORMATION
  Report Type: 
  Country: None (occurrence: None)
  Receive Date: 20090831
  Receipt Date: 20090820
  Transmission Date: 20100115
  Serious: Yes (Life-Threatening)
  Sender: FDA-Public Use
  Company Number: PHHY2009IT36352

PATIENT
  Sex: Female

DRUGS (2)
  1. SYNTOCINON [Suspect]
     Indication: UTERINE ATONY
     Dosage: 5 IU/ML, ONCE/SINGLE
     Route: 042
     Dates: start: 20090813, end: 20090813
  2. BUPIVACAINE [Concomitant]
     Indication: ANAESTHESIA
     Dosage: 10 MG, UNK

REACTIONS (8)
  - ANAPHYLACTIC SHOCK [None]
  - ANAPHYLACTOID REACTION [None]
  - ANGIOEDEMA [None]
  - BRONCHOSTENOSIS [None]
  - CARDIAC ARREST [None]
  - ERYTHEMA [None]
  - PRURITUS [None]
  - SHOCK [None]
